FAERS Safety Report 6471962-6 (Version None)
Quarter: 2009Q4

REPORT INFORMATION
  Report Type: 
  Country: None (occurrence: None)
  Receive Date: 20091203
  Receipt Date: 20081002
  Transmission Date: 20100525
  Serious: Yes (Disabling)
  Sender: FDA-Public Use
  Company Number: JP-ELI_LILLY_AND_COMPANY-JP200804000649

PATIENT
  Age: 55 Year
  Sex: Male

DRUGS (4)
  1. CIALIS [Suspect]
     Indication: ERECTILE DYSFUNCTION
     Dosage: 10 MG, AS NEEDED
     Route: 048
     Dates: start: 20070101, end: 20070101
  2. CIALIS [Suspect]
     Dosage: 20 MG, AS NEEDED
     Route: 048
     Dates: start: 20071222, end: 20080119
  3. CALBLOCK [Concomitant]
     Indication: HYPERTENSION
     Dosage: 16 MG, DAILY (1/D)
     Route: 048
     Dates: start: 20061001
  4. DIOVAN /SCH/ [Concomitant]
     Indication: HYPERTENSION
     Dosage: 80 MG, DAILY (1/D)
     Route: 048
     Dates: start: 20061001

REACTIONS (2)
  - BACK PAIN [None]
  - VISUAL IMPAIRMENT [None]
